FAERS Safety Report 6635975-3 (Version None)
Quarter: 2010Q1

REPORT INFORMATION
  Report Type: 
  Country: None (occurrence: None)
  Receive Date: 20100316
  Receipt Date: 20100307
  Transmission Date: 20100710
  Serious: Yes (Other)
  Sender: FDA-Public Use
  Company Number: US-BAYER-200910534GPV

PATIENT

DRUGS (6)
  1. SORAFENIB [Suspect]
     Indication: NEOPLASM
     Dosage: TOTAL DAILY DOSE: 400 MG
     Route: 048
  2. CARBOPLATIN [Suspect]
     Indication: NEOPLASM
     Dosage: DOSE WAS LOWERED TO AUC=5, OVER 30 MINUTES ON DAY 1 OF 3 WEEK CYCLE
     Route: 065
  3. PEMETREXED [Suspect]
     Indication: NEOPLASM
     Dosage: 500 MG/M2 IN COMBINATION WITH ESCALATING DOSES OF SORAFENIB
     Route: 065
  4. FOLIC ACID [Concomitant]
  5. VITAMIN B-12 [Concomitant]
  6. DEXAMETHASONE [Concomitant]

REACTIONS (3)
  - DEHYDRATION [None]
  - HYPOGLYCAEMIA [None]
  - HYPONATRAEMIA [None]
